FAERS Safety Report 6756464-1 (Version None)
Quarter: 2010Q2

REPORT INFORMATION
  Report Type: 
  Country: None (occurrence: None)
  Receive Date: 20100604
  Receipt Date: 20100528
  Transmission Date: 20101027
  Serious: Yes (Death, Hospitalization)
  Sender: FDA-Public Use
  Company Number: A0862624A

PATIENT

DRUGS (1)
  1. AVANDIA [Suspect]
     Route: 048
     Dates: end: 20020101

REACTIONS (1)
  - CARDIAC FAILURE CONGESTIVE [None]
